FAERS Safety Report 7681056-X (Version None)
Quarter: 2011Q3

REPORT INFORMATION
  Report Type: 
  Country: None (occurrence: None)
  Receive Date: 20110812
  Receipt Date: 20110809
  Transmission Date: 20111222
  Serious: Yes (Death, Hospitalization, Other)
  Sender: FDA-Public Use
  Company Number: JP-SANOFI-AVENTIS-A01200812238

PATIENT
  Age: 57 Year
  Sex: Male
  Weight: 70 kg

DRUGS (14)
  1. LEUCOVORIN CALCIUM [Suspect]
     Route: 041
     Dates: start: 20070927
  2. AVASTIN [Suspect]
     Dosage: UNIT DOSE: 5 MG/KG
     Route: 041
     Dates: start: 20080807, end: 20080807
  3. MAGNESIUM OXIDE [Concomitant]
     Dates: start: 20070927
  4. DOMPERIDONE [Concomitant]
     Dates: start: 20070927
  5. LEUCOVORIN CALCIUM [Suspect]
     Route: 041
     Dates: start: 20080807, end: 20080807
  6. DEXAMETHASONE SODIUM PHOSPHATE [Concomitant]
     Dates: start: 20070927
  7. FLUOROURACIL [Suspect]
     Route: 041
     Dates: start: 20070927
  8. LEUCOVORIN CALCIUM [Suspect]
     Route: 065
  9. KYTRIL [Concomitant]
     Dates: start: 20070927
  10. OXALIPLATIN [Suspect]
     Route: 041
     Dates: start: 20080807, end: 20080807
  11. OXALIPLATIN [Suspect]
     Route: 041
     Dates: start: 20070927
  12. FLUOROURACIL [Suspect]
     Route: 041
     Dates: start: 20080807, end: 20080807
  13. AVASTIN [Suspect]
     Route: 041
     Dates: start: 20071221
  14. TAMSULOSIN HCL [Concomitant]
     Dates: start: 20070927

REACTIONS (10)
  - INTERSTITIAL LUNG DISEASE [None]
  - THROMBOCYTOPENIA [None]
  - MULTI-ORGAN FAILURE [None]
  - RENAL FAILURE [None]
  - LOBAR PNEUMONIA [None]
  - MALAISE [None]
  - MELAENA [None]
  - HYPOXIA [None]
  - CIRCULATORY COLLAPSE [None]
  - PYREXIA [None]
